FAERS Safety Report 10749611 (Version 1)
Quarter: 2015Q1

REPORT INFORMATION
  Report Type: Spontaneous
  Country: IN (occurrence: IN)
  Receive Date: 20150129
  Receipt Date: 20150129
  Transmission Date: 20150721
  Serious: Yes (Hospitalization, Other)
  Sender: FDA-Public Use
  Company Number: IN-MYLANLABS-2015M1001981

PATIENT

DRUGS (8)
  1. DEXAMETHASONE. [Suspect]
     Active Substance: DEXAMETHASONE
     Indication: OFF LABEL USE
     Route: 042
  2. PHENIRAMINE [Suspect]
     Active Substance: PHENIRAMINE
     Route: 042
  3. COTRIMOXAZOLE [Concomitant]
     Active Substance: SULFAMETHOXAZOLE\TRIMETHOPRIM
     Indication: BODY TINEA
     Route: 048
  4. GENTAMICIN. [Suspect]
     Active Substance: GENTAMICIN
     Indication: BODY TINEA
     Dosage: 1 ML EACH OF DEXAMATHASONE, GENTAMICIN, PHENIRAMINE FOR 3 SUCCESSIVE DAYS, THEN ONCE A DAY.
     Route: 042
  5. GENTAMICIN. [Suspect]
     Active Substance: GENTAMICIN
     Route: 042
  6. PHENIRAMINE [Suspect]
     Active Substance: PHENIRAMINE
     Indication: BODY TINEA
     Dosage: 1 ML EACH OF DEXAMATHASONE, GENTAMICIN, PHENIRAMINE FOR 3 SUCCESSIVE DAYS, THEN ONCE A DAY.
     Route: 042
  7. CETIRIZINE [Concomitant]
     Active Substance: CETIRIZINE HYDROCHLORIDE
     Indication: BODY TINEA
     Route: 048
  8. DEXAMETHASONE. [Suspect]
     Active Substance: DEXAMETHASONE
     Indication: BODY TINEA
     Dosage: 1 ML EACH OF DEXAMATHASONE, GENTAMICIN, PHENIRAMINE FOR 3 SUCCESSIVE DAYS, THEN ONCE A DAY.
     Route: 042

REACTIONS (7)
  - Osteonecrosis [Unknown]
  - Drug abuse [Unknown]
  - Gastrointestinal infection [Unknown]
  - Drug dependence [Unknown]
  - Drug withdrawal syndrome [Unknown]
  - Hypochondriasis [Unknown]
  - Respiratory tract infection [Unknown]
